FAERS Safety Report 20369903 (Version 2)
Quarter: 2022Q1

REPORT INFORMATION
  Report Type: Report from Study
  Country: US (occurrence: US)
  Receive Date: 20220124
  Receipt Date: 20220207
  Transmission Date: 20220423
  Serious: Yes (Death, Hospitalization)
  Sender: FDA-Public Use
  Company Number: US-OTSUKA-2022_002914

PATIENT
  Age: 68 Year
  Sex: Male

DRUGS (37)
  1. DEXTROMETHORPHAN HYDROBROMIDE\QUINIDINE SULFATE [Suspect]
     Active Substance: DEXTROMETHORPHAN HYDROBROMIDE\QUINIDINE SULFATE
     Indication: Affect lability
     Dosage: 1 DF, BID
     Route: 048
     Dates: start: 20200129, end: 20210119
  2. DEXTROMETHORPHAN HYDROBROMIDE\QUINIDINE SULFATE [Suspect]
     Active Substance: DEXTROMETHORPHAN HYDROBROMIDE\QUINIDINE SULFATE
     Indication: Affective disorder
  3. CARBAMAZEPINE [Concomitant]
     Active Substance: CARBAMAZEPINE
     Indication: Autonomic dysreflexia
     Dosage: 100 MG, TID EXTENDED RELEASE CAPSULE
     Route: 048
     Dates: start: 20200129, end: 20210119
  4. HUMALOG [Concomitant]
     Active Substance: INSULIN LISPRO
     Indication: Type 2 diabetes mellitus
     Dosage: UNK , QD 6 UNITS IN THE EVENING, HOLD IF BLOOD GLUCOSE LESS THAN 130
     Route: 058
     Dates: start: 20200130, end: 20210119
  5. ALLOPURINOL [Concomitant]
     Active Substance: ALLOPURINOL
     Indication: Gout
     Dosage: 300 MG, QD
     Route: 048
     Dates: start: 20200130, end: 20210119
  6. AMIODARONE [Concomitant]
     Active Substance: AMIODARONE
     Indication: Atrial fibrillation
     Dosage: 200 MG, QD
     Route: 048
     Dates: start: 20200211, end: 20210119
  7. ELIQUIS [Concomitant]
     Active Substance: APIXABAN
     Indication: Atrial fibrillation
     Dosage: 5 MG, BID
     Route: 048
     Dates: start: 20200129, end: 20210119
  8. ASPIRIN [Concomitant]
     Active Substance: ASPIRIN
     Indication: Prophylaxis
     Dosage: 81 MG, QD
     Route: 048
     Dates: start: 20200130, end: 20210119
  9. BACLOFEN [Concomitant]
     Active Substance: BACLOFEN
     Indication: Muscle spasms
     Dosage: 10 MG, BID
     Route: 048
     Dates: start: 20200129, end: 20210119
  10. COLCHICINE [Concomitant]
     Active Substance: COLCHICINE
     Indication: Gout
     Dosage: 0.6 MG, QD
     Route: 048
     Dates: start: 20200130, end: 20210119
  11. POLYETHYLENE GLYCOL 3350 [Concomitant]
     Active Substance: POLYETHYLENE GLYCOL 3350
     Indication: Change of bowel habit
     Dosage: 17 G, QD IN DOSING CAP, MIX WITH 60% OF SUITABLE LIQUID AND ADMINISTER
     Route: 048
     Dates: start: 20200130, end: 20210119
  12. METOPROLOL SUCCINATE [Concomitant]
     Active Substance: METOPROLOL SUCCINATE
     Indication: Hypertension
     Dosage: 200 MG, EXTENDED RELEASE TABLET QD
     Route: 048
     Dates: start: 20200130, end: 20210119
  13. FLUTICASONE PROPIONATE [Concomitant]
     Active Substance: FLUTICASONE PROPIONATE
     Indication: Hypersensitivity
     Dosage: 50 ?G, QD (2 SPRAY BILATERAL NARES)
     Route: 045
     Dates: start: 20200130, end: 20210119
  14. GABAPENTIN [Concomitant]
     Active Substance: GABAPENTIN
     Indication: Neuralgia
     Dosage: 300 MG, BID
     Route: 048
     Dates: start: 20200129, end: 20210119
  15. POTASSIUM CHLORIDE [Concomitant]
     Active Substance: POTASSIUM CHLORIDE
     Indication: Supplementation therapy
     Dosage: 20 MEQ, EXTENDED RELEASE TABLET QD
     Route: 048
     Dates: start: 20200130, end: 20210119
  16. TORSEMIDE [Concomitant]
     Active Substance: TORSEMIDE
     Indication: Oedema
     Dosage: 20 MG, 4 TABS (80 MG) QD
     Route: 048
     Dates: start: 20200130, end: 20210119
  17. VENLAFAXINE [Concomitant]
     Active Substance: VENLAFAXINE HYDROCHLORIDE
     Indication: Depression
     Dosage: 225 MG, EXTENDED RELEASE TABLET QD
     Route: 048
     Dates: start: 20200130, end: 20210119
  18. NORVASC [Concomitant]
     Active Substance: AMLODIPINE BESYLATE
     Indication: Hypertensive heart disease
     Dosage: 7.5 MG, QD
     Route: 048
     Dates: start: 20201205, end: 20210119
  19. LANTUS [Concomitant]
     Active Substance: INSULIN GLARGINE
     Indication: Type 2 diabetes mellitus
     Dosage: 100 UNITS/ML QD AT NOON
     Route: 058
     Dates: start: 20200513, end: 20210119
  20. SENNA AND DOCUSATE SODIUM [Concomitant]
     Active Substance: DOCUSATE SODIUM\SENNOSIDES
     Indication: Change of bowel habit
     Dosage: 8.6 MG TO 50 MG TABLET QD IN THE EVENING
     Route: 048
     Dates: start: 20200818, end: 20210119
  21. ATORVASTATIN [Concomitant]
     Active Substance: ATORVASTATIN
     Indication: Hyperlipidaemia
     Dosage: 20 MG, QD
     Route: 048
     Dates: start: 20200129, end: 20210119
  22. DEPAKOTE [Concomitant]
     Active Substance: DIVALPROEX SODIUM
     Indication: Affective disorder
     Dosage: 250 MG, EXTENDED RELEASE TABLET QD
     Route: 048
     Dates: start: 20200129, end: 20210119
  23. DOXAZOSIN [Concomitant]
     Active Substance: DOXAZOSIN MESYLATE
     Indication: Hypertension
     Dosage: 8 MG, QD
     Route: 048
     Dates: start: 20200129, end: 20210119
  24. DOXAZOSIN [Concomitant]
     Active Substance: DOXAZOSIN MESYLATE
     Indication: Benign prostatic hyperplasia
  25. LATANOPROST [Concomitant]
     Active Substance: LATANOPROST
     Indication: Glaucoma
     Dosage: 0.005 %, QD AT BEDTIME (TAKE 3-5 MIN APART TO PREVENT WASH OUT)
     Dates: start: 20200506, end: 20210119
  26. PANTOPRAZOLE [Concomitant]
     Active Substance: PANTOPRAZOLE
     Indication: Gastrooesophageal reflux disease
     Dosage: UNK, QOD
     Route: 048
     Dates: start: 20200625, end: 20210119
  27. INFLUENZA VIRUS VACCINE [Concomitant]
     Active Substance: INFLUENZA VIRUS VACCINE
     Indication: Prophylaxis
     Dosage: 0.5 ML, (OCTOBER TO FEBRUARY) AS NECESSARY
     Route: 030
     Dates: start: 20200129, end: 20210119
  28. MILK OF MAGNESIA [Concomitant]
     Active Substance: MAGNESIUM HYDROXIDE
     Indication: Product used for unknown indication
     Dosage: 30 ML, QD
     Dates: start: 20200129, end: 20210119
  29. BISAC EVAC [Concomitant]
     Indication: Product used for unknown indication
     Dosage: AS NEEDED PER PROTOCOL
     Route: 054
     Dates: start: 20200129, end: 20210129
  30. GLYCERIN [Concomitant]
     Active Substance: GLYCERIN
     Indication: Product used for unknown indication
     Dosage: AS NECCESSARY PER PROTOCOL
     Route: 054
     Dates: start: 20200129, end: 20210119
  31. BISACODYL [Concomitant]
     Active Substance: BISACODYL
     Indication: Product used for unknown indication
     Dosage: UNK, QD AS NEEDED WITRH FULL GLASS OF WATER AS PER PROTOCOL
     Route: 048
  32. COMBIVENT RESPIMAT [Concomitant]
     Active Substance: ALBUTEROL SULFATE\IPRATROPIUM BROMIDE
     Indication: Dyspnoea
     Dosage: 20 MCG -100 MCG/ACTUATION SOLUTION FOR INHALATION
     Route: 065
     Dates: start: 20200503, end: 20210119
  33. COMBIVENT RESPIMAT [Concomitant]
     Active Substance: ALBUTEROL SULFATE\IPRATROPIUM BROMIDE
     Indication: Wheezing
  34. ROBAFEN [GUAIFENESIN] [Concomitant]
     Indication: Cough
     Dosage: 7.5 ML, QD
     Route: 048
     Dates: start: 20210112, end: 20220112
  35. ROBAFEN [GUAIFENESIN] [Concomitant]
     Dosage: 7.5 ML BY MOUTH EVERY 4 HOURS
     Route: 048
     Dates: start: 20210112, end: 20210119
  36. ACETAMINOPHEN [Concomitant]
     Active Substance: ACETAMINOPHEN
     Indication: Body temperature increased
     Dosage: 325 MG, Q4HR
     Route: 048
     Dates: start: 20200129, end: 20210119
  37. ACETAMINOPHEN [Concomitant]
     Active Substance: ACETAMINOPHEN
     Indication: Pain

REACTIONS (2)
  - Death [Fatal]
  - COVID-19 [Unknown]

NARRATIVE: CASE EVENT DATE: 20210113
